FAERS Safety Report 10653757 (Version 1)
Quarter: 2014Q4

REPORT INFORMATION
  Report Type: Spontaneous
  Country: BR (occurrence: BR)
  Receive Date: 20141216
  Receipt Date: 20141216
  Transmission Date: 20150529
  Serious: Yes (Hospitalization)
  Sender: FDA-Public Use
  Company Number: BR-ROCHE-1506257

PATIENT
  Age: 39 Year
  Sex: Female
  Weight: 70 kg

DRUGS (6)
  1. TAMIFLU [Suspect]
     Active Substance: OSELTAMIVIR PHOSPHATE
     Indication: H1N1 INFLUENZA
     Dosage: ONE CAPSULE EVERY 12 HOURS
     Route: 065
  2. ANTAK [Concomitant]
     Active Substance: RANITIDINE HYDROCHLORIDE
     Indication: H1N1 INFLUENZA
  3. DRAMAMINE [Concomitant]
     Active Substance: DIMENHYDRINATE
     Indication: NAUSEA
  4. TAMIFLU [Suspect]
     Active Substance: OSELTAMIVIR PHOSPHATE
     Dosage: ONE CAPSULE EVERY 12 HOURS
     Route: 065
  5. ROCEFIN [Suspect]
     Active Substance: CEFTRIAXONE SODIUM
     Indication: H1N1 INFLUENZA
     Route: 065
  6. AMOXICILLIN. [Concomitant]
     Active Substance: AMOXICILLIN
     Indication: H1N1 INFLUENZA
     Route: 065
     Dates: start: 2014

REACTIONS (11)
  - Nausea [Recovered/Resolved]
  - Vomiting [Recovered/Resolved]
  - Pain [Recovered/Resolved]
  - Expired product administered [Unknown]
  - Dehydration [Recovered/Resolved]
  - Gastric disorder [Recovered/Resolved]
  - Base excess increased [Recovered/Resolved]
  - PO2 increased [Not Recovered/Not Resolved]
  - Diarrhoea [Recovered/Resolved]
  - Pregnancy [Unknown]
  - PCO2 decreased [Recovered/Resolved]

NARRATIVE: CASE EVENT DATE: 201410
